FAERS Safety Report 11233266 (Version 36)
Quarter: 2018Q1

REPORT INFORMATION
  Report Type: Report from Study
  Country: CA (occurrence: CA)
  Receive Date: 20150701
  Receipt Date: 20180305
  Transmission Date: 20180508
  Serious: Yes (Other)
  Sender: FDA-Public Use
  Company Number: CA-ROCHE-1343758

PATIENT
  Age: 63 Year
  Sex: Female
  Weight: 77 kg

DRUGS (17)
  1. PREDNISONE. [Concomitant]
     Active Substance: PREDNISONE
     Dosage: INCREASED HER PREDNISONE TO 15 MG DAILY
     Route: 065
  2. TRIFLUOPERAZINE [Concomitant]
     Active Substance: TRIFLUOPERAZINE\TRIFLUOPERAZINE HYDROCHLORIDE
  3. ACTEMRA [Suspect]
     Active Substance: TOCILIZUMAB
     Indication: RHEUMATOID ARTHRITIS
     Route: 042
     Dates: start: 20140109, end: 20180126
  4. LISINOPRIL. [Concomitant]
     Active Substance: LISINOPRIL
  5. TRIMIPRAMINE [Concomitant]
     Active Substance: TRIMIPRAMINE
  6. FOLIC ACID. [Concomitant]
     Active Substance: FOLIC ACID
     Route: 065
  7. ARTHROTEC [Concomitant]
     Active Substance: DICLOFENAC SODIUM\MISOPROSTOL
  8. ACTEMRA [Suspect]
     Active Substance: TOCILIZUMAB
     Route: 042
     Dates: start: 20140404
  9. ACTEMRA [Suspect]
     Active Substance: TOCILIZUMAB
     Route: 042
     Dates: start: 20170927
  10. RANITIDINE. [Concomitant]
     Active Substance: RANITIDINE
  11. IMIPRAMINE [Concomitant]
     Active Substance: IMIPRAMINE
  12. GABAPENTIN. [Concomitant]
     Active Substance: GABAPENTIN
     Route: 065
     Dates: end: 20140614
  13. FOLIC ACID. [Concomitant]
     Active Substance: FOLIC ACID
     Route: 065
  14. ACTEMRA [Suspect]
     Active Substance: TOCILIZUMAB
     Route: 042
     Dates: start: 20141022
  15. METHOTREXATE. [Concomitant]
     Active Substance: METHOTREXATE
  16. DIPROSALIC [Concomitant]
     Active Substance: BETAMETHASONE DIPROPIONATE
  17. PRAVASTATIN. [Concomitant]
     Active Substance: PRAVASTATIN

REACTIONS (69)
  - Injection site bruising [Recovering/Resolving]
  - Visual impairment [Unknown]
  - Abdominal pain upper [Unknown]
  - Eye pain [Not Recovered/Not Resolved]
  - Blister [Not Recovered/Not Resolved]
  - Feeling abnormal [Unknown]
  - Cyst [Not Recovered/Not Resolved]
  - Haematochezia [Unknown]
  - Uterine leiomyoma [Not Recovered/Not Resolved]
  - Pain in extremity [Recovering/Resolving]
  - Tooth repair [Unknown]
  - Tooth disorder [Recovered/Resolved]
  - Diarrhoea [Recovered/Resolved]
  - Gastrooesophageal reflux disease [Recovered/Resolved]
  - Paraesthesia [Not Recovered/Not Resolved]
  - Polyp [Unknown]
  - Oral herpes [Recovered/Resolved]
  - Hypoaesthesia [Not Recovered/Not Resolved]
  - Dizziness [Not Recovered/Not Resolved]
  - Nasopharyngitis [Not Recovered/Not Resolved]
  - Heart rate decreased [Unknown]
  - Scab [Not Recovered/Not Resolved]
  - Head discomfort [Unknown]
  - Cough [Not Recovered/Not Resolved]
  - Pain in extremity [Not Recovered/Not Resolved]
  - Stress [Not Recovered/Not Resolved]
  - Abdominal pain [Unknown]
  - Blood pressure fluctuation [Unknown]
  - Viral sinusitis [Unknown]
  - Throat irritation [Not Recovered/Not Resolved]
  - Fall [Unknown]
  - Contusion [Not Recovered/Not Resolved]
  - Drug ineffective [Not Recovered/Not Resolved]
  - Pain [Not Recovered/Not Resolved]
  - Scab [Unknown]
  - Nasal ulcer [Recovered/Resolved]
  - Foot deformity [Not Recovered/Not Resolved]
  - Blood pressure increased [Unknown]
  - Excessive cerumen production [Unknown]
  - Upper limb fracture [Not Recovered/Not Resolved]
  - Blood cholesterol increased [Unknown]
  - Thrombosis [Unknown]
  - Fibromyalgia [Unknown]
  - Weight decreased [Unknown]
  - Respiratory rate decreased [Unknown]
  - Infusion related reaction [Unknown]
  - Weight decreased [Not Recovered/Not Resolved]
  - Contusion [Not Recovered/Not Resolved]
  - Swelling [Unknown]
  - Blood pressure increased [Unknown]
  - Rash erythematous [Unknown]
  - Cough [Unknown]
  - Headache [Unknown]
  - Pain [Not Recovered/Not Resolved]
  - Headache [Not Recovered/Not Resolved]
  - Joint swelling [Not Recovered/Not Resolved]
  - Weight increased [Not Recovered/Not Resolved]
  - Viral infection [Unknown]
  - Peripheral swelling [Not Recovered/Not Resolved]
  - Osteoarthritis [Unknown]
  - Abnormal faeces [Unknown]
  - Injection site bruising [Unknown]
  - Skin discolouration [Unknown]
  - Oxygen saturation decreased [Recovered/Resolved]
  - Fall [Unknown]
  - Dyspepsia [Not Recovered/Not Resolved]
  - Limb injury [Unknown]
  - Joint injury [Unknown]
  - Peripheral swelling [Not Recovered/Not Resolved]

NARRATIVE: CASE EVENT DATE: 20140612
